FAERS Safety Report 8156449-7 (Version None)
Quarter: 2012Q1

REPORT INFORMATION
  Report Type: 
  Country: None (occurrence: None)
  Receive Date: 20120222
  Receipt Date: 20120220
  Transmission Date: 20120608
  Serious: No
  Sender: FDA-Public Use
  Company Number: US-TEVA-323541USA

PATIENT
  Sex: Male

DRUGS (3)
  1. AZILECT [Suspect]
     Indication: PARKINSON'S DISEASE
     Dosage: 1 MILLIGRAM;
     Route: 048
     Dates: start: 20091201
  2. REQUIP XL [Concomitant]
     Indication: PARKINSON'S DISEASE
     Dosage: 12 MILLIGRAM;
     Route: 048
  3. BENACAR HCT [Concomitant]
     Indication: HYPERTENSION
     Route: 048

REACTIONS (1)
  - LIGAMENT RUPTURE [None]
